FAERS Safety Report 4800210-5 (Version None)
Quarter: 2005Q4

REPORT INFORMATION
  Report Type: 
  Country: None (occurrence: None)
  Receive Date: 20051017
  Receipt Date: 20051008
  Transmission Date: 20060501
  Serious: Yes (Hospitalization)
  Sender: FDA-Public Use
  Company Number: DE-ABBOTT-05P-062-0313292-00

PATIENT
  Sex: Female

DRUGS (3)
  1. GOPTEN [Suspect]
     Indication: SUICIDE ATTEMPT
     Dosage: 6MG AT MOST, 12 TABLETS AT ONCE AT MOST
     Route: 048
     Dates: start: 20051008, end: 20051008
  2. OPIPRAMOL [Suspect]
     Indication: SUICIDE ATTEMPT
     Route: 048
     Dates: start: 20051008, end: 20051008
  3. IBUPROFEN LYSINATE [Suspect]
     Indication: SUICIDE ATTEMPT
     Route: 048
     Dates: start: 20051008, end: 20051008

REACTIONS (2)
  - FATIGUE [None]
  - SUICIDE ATTEMPT [None]
